FAERS Safety Report 14136246 (Version 2)
Quarter: 2017Q4

REPORT INFORMATION
  Report Type: Spontaneous
  Country: IT (occurrence: IT)
  Receive Date: 20171027
  Receipt Date: 20171030
  Transmission Date: 20180321
  Serious: Yes (Other)
  Sender: FDA-Public Use
  Company Number: IT-SA-2017SA205490

PATIENT
  Age: 52 Year
  Sex: Male
  Weight: 83 kg

DRUGS (6)
  1. DOCETAXEL. [Suspect]
     Active Substance: DOCETAXEL
     Route: 042
  2. ZOMETA [Suspect]
     Active Substance: ZOLEDRONIC ACID
     Indication: PROPHYLAXIS
     Dosage: STRENGTH: 4 MG POWDER AND SOLVENT FOR SOLUTION FOR IV INFUSION, 1 VIAL + 1 VIAL SOLVENT 5 ML
     Route: 042
     Dates: start: 20130801, end: 20150930
  3. ATORVASTATIN [Concomitant]
     Active Substance: ATORVASTATIN
     Route: 048
  4. ZOMETA [Suspect]
     Active Substance: ZOLEDRONIC ACID
     Indication: PROPHYLAXIS
     Dosage: STRENGTH: 4 MG POWDER AND SOLVENT FOR SOLUTION FOR IV INFUSION 4 VIALS + 4 VIAL SOLVENT 5 ML
     Route: 042
     Dates: start: 20160101, end: 20160501
  5. TAREG [Concomitant]
     Active Substance: VALSARTAN
     Dosage: 160 MG FILM COATED TABLET AT A DOSE OF 1 DOSAGE UNIT
     Route: 048
  6. CIALIS [Concomitant]
     Active Substance: TADALAFIL

REACTIONS (1)
  - Osteonecrosis of jaw [Unknown]

NARRATIVE: CASE EVENT DATE: 20161001
